FAERS Safety Report 5631831-8 (Version None)
Quarter: 2008Q1

REPORT INFORMATION
  Report Type: 
  Country: None (occurrence: None)
  Receive Date: 20080220
  Receipt Date: 20080218
  Transmission Date: 20080703
  Serious: Yes (Life-Threatening, Hospitalization)
  Sender: FDA-Public Use
  Company Number: PHEH2007US03753

PATIENT
  Age: 59 Year
  Sex: Female
  Weight: 71.201 kg

DRUGS (7)
  1. IBUPROFEN [Suspect]
     Indication: HEADACHE
     Dosage: 600 MG, TID
     Route: 048
     Dates: end: 20070327
  2. DIOVAN HCT [Suspect]
     Indication: HYPERTENSION
     Route: 048
  3. CRESTOR [Concomitant]
     Indication: HYPERLIPIDAEMIA
     Dosage: 5 MG, QOD
     Route: 048
  4. AMITRIPTYLINE HCL [Concomitant]
     Indication: HEADACHE
     Dosage: 10 MG, QHS
     Route: 048
  5. FISH OIL [Concomitant]
     Indication: HYPERLIPIDAEMIA
     Dosage: 1000MG, 3 TABS BID
  6. CALCIUM WITH VITAMIN D [Concomitant]
     Dosage: 600/200, BID
     Route: 048
  7. VITAMIN CAP [Concomitant]
     Dosage: 1 TAB, QD

REACTIONS (8)
  - BLOOD CREATININE INCREASED [None]
  - BLOOD UREA INCREASED [None]
  - LIVER FUNCTION TEST ABNORMAL [None]
  - PROTEINURIA [None]
  - PULMONARY ARTERY ANEURYSM [None]
  - RENAL FAILURE ACUTE [None]
  - SEPSIS [None]
  - WHITE BLOOD CELL COUNT INCREASED [None]
